FAERS Safety Report 8471814 (Version 2)
Quarter: 2013Q1

REPORT INFORMATION
  Report Type: Spontaneous
  Country: US (occurrence: US)
  Receive Date: 20120322
  Receipt Date: 20130322
  Transmission Date: 20140127
  Serious: Yes (Other)
  Sender: FDA-Public Use
  Company Number: US-BRISTOL-MYERS SQUIBB COMPANY-16371148

PATIENT
  Age: 68 Year
  Sex: Male
  Weight: 46.26 kg

DRUGS (1)
  1. ERBITUX [Suspect]
     Indication: HEAD AND NECK CANCER
     Dates: start: 20111212, end: 20120123

REACTIONS (2)
  - Malignant neoplasm progression [Unknown]
  - Tooth disorder [Unknown]
